FAERS Safety Report 23311915 (Version 1)
Quarter: 2023Q4

REPORT INFORMATION
  Report Type: Spontaneous
  Country: US (occurrence: None)
  Receive Date: 20231218
  Receipt Date: 20231218
  Transmission Date: 20240110
  Serious: Yes (Other)
  Sender: FDA-Public Use
  Company Number: None

PATIENT
  Age: 45 Year
  Sex: Female
  Weight: 84.15 kg

DRUGS (6)
  1. MEDROXYPROGESTERONE ACETATE [Suspect]
     Active Substance: MEDROXYPROGESTERONE ACETATE
     Indication: Amenorrhoea
     Route: 048
     Dates: start: 20231216
  2. ventolin inhaler 18g [Concomitant]
  3. provera 10 mg [Concomitant]
  4. vitamin d 1,000 iu [Concomitant]
  5. magnesium 800 mg [Concomitant]
  6. ZYRTEC [Concomitant]
     Active Substance: CETIRIZINE HYDROCHLORIDE

REACTIONS (4)
  - Erythema [None]
  - Flushing [None]
  - Feeling hot [None]
  - Pyrexia [None]

NARRATIVE: CASE EVENT DATE: 20231217
